FAERS Safety Report 16780464 (Version 3)
Quarter: 2019Q3

REPORT INFORMATION
  Report Type: Spontaneous
  Country: US (occurrence: US)
  Receive Date: 20190906
  Receipt Date: 20190917
  Transmission Date: 20191005
  Serious: Yes (Other)
  Sender: FDA-Public Use
  Company Number: US-PFIZER INC-2019376796

PATIENT
  Age: 68 Year
  Sex: Female

DRUGS (2)
  1. VANCOMYCIN HCL [Suspect]
     Active Substance: VANCOMYCIN HYDROCHLORIDE
     Indication: PROPHYLAXIS
  2. VANCOMYCIN HCL [Suspect]
     Active Substance: VANCOMYCIN HYDROCHLORIDE
     Indication: ENDOPHTHALMITIS
     Dosage: UNK (1.0 MG/0.1 ML INTRACAMERAL)
     Route: 031

REACTIONS (4)
  - Off label use [Unknown]
  - Product use issue [Unknown]
  - Type IV hypersensitivity reaction [Recovered/Resolved]
  - Retinal vasculitis [Recovered/Resolved]
